FAERS Safety Report 7672341-6 (Version None)
Quarter: 2011Q3

REPORT INFORMATION
  Report Type: 
  Country: None (occurrence: None)
  Receive Date: 20110804
  Receipt Date: 20110725
  Transmission Date: 20111222
  Serious: Yes (Death)
  Sender: FDA-Public Use
  Company Number: 1000022348

PATIENT
  Age: 58 Year
  Sex: Female

DRUGS (5)
  1. MEMANTINE [Suspect]
     Indication: DEMENTIA ALZHEIMER'S TYPE
     Dosage: 5, 10,20  MG (5 MG, 1 1 IN 1 D), ORAL
     Route: 048
     Dates: start: 20110620, end: 20110626
  2. MEMANTINE [Suspect]
     Indication: DEMENTIA ALZHEIMER'S TYPE
     Dosage: 5, 10,20  MG (5 MG, 1 1 IN 1 D), ORAL
     Route: 048
     Dates: start: 20110711, end: 20110711
  3. MEMANTINE [Suspect]
     Indication: DEMENTIA ALZHEIMER'S TYPE
     Dosage: 5, 10,20  MG (5 MG, 1 1 IN 1 D), ORAL
     Route: 048
     Dates: start: 20110627, end: 20110703
  4. MEMANTINE [Suspect]
     Indication: DEMENTIA ALZHEIMER'S TYPE
     Dosage: 5, 10,20  MG (5 MG, 1 1 IN 1 D), ORAL
     Route: 048
     Dates: start: 20110704, end: 20110710
  5. ARICEPT [Concomitant]

REACTIONS (6)
  - HEAT ILLNESS [None]
  - FALL [None]
  - CARDIAC FAILURE ACUTE [None]
  - CARDIO-RESPIRATORY ARREST [None]
  - BLOOD PRESSURE DECREASED [None]
  - DIZZINESS [None]
